FAERS Safety Report 19510857 (Version 2)
Quarter: 2025Q2

REPORT INFORMATION
  Report Type: Spontaneous
  Country: US (occurrence: US)
  Receive Date: 20210709
  Receipt Date: 20250626
  Transmission Date: 20250716
  Serious: Yes (Life-Threatening, Hospitalization, Other)
  Sender: AUROBINDO
  Company Number: US-MLMSERVICE-20210624-2962866-1

PATIENT
  Age: 63 Year
  Sex: Male

DRUGS (4)
  1. DEXAMETHASONE [Suspect]
     Active Substance: DEXAMETHASONE
     Indication: COVID-19
     Route: 065
  2. VORICONAZOLE [Suspect]
     Active Substance: VORICONAZOLE
     Indication: COVID-19
     Route: 042
  3. VORICONAZOLE [Suspect]
     Active Substance: VORICONAZOLE
     Indication: Bronchopulmonary aspergillosis
  4. OXYGEN [Concomitant]
     Active Substance: OXYGEN
     Indication: Hypoxia
     Route: 065

REACTIONS (3)
  - Hypoxia [Unknown]
  - Bronchopulmonary aspergillosis [Unknown]
  - Condition aggravated [Unknown]
